FAERS Safety Report 14124287 (Version 2)
Quarter: 2018Q2

REPORT INFORMATION
  Report Type: Spontaneous
  Country: IT (occurrence: IT)
  Receive Date: 20171025
  Receipt Date: 20180529
  Transmission Date: 20180711
  Serious: Yes (Life-Threatening)
  Sender: FDA-Public Use
  Company Number: IT-TEVA-817679ACC

PATIENT
  Age: 65 Year
  Sex: Female
  Weight: 67 kg

DRUGS (1)
  1. OXALIPLATIN INJECTION 50MG/10 ML+100MG/20ML [Suspect]
     Active Substance: OXALIPLATIN
     Indication: RECTAL CANCER STAGE II
     Dosage: 150 MG MONTHLY
     Route: 041
     Dates: start: 20170919, end: 20170919

REACTIONS (4)
  - Dyspnoea [Recovered/Resolved]
  - Throat tightness [Recovered/Resolved]
  - Dysphonia [Recovered/Resolved]
  - Dyspnoea [Recovered/Resolved]

NARRATIVE: CASE EVENT DATE: 20170919
